FAERS Safety Report 7273155-1 (Version None)
Quarter: 2011Q1

REPORT INFORMATION
  Report Type: 
  Country: None (occurrence: None)
  Receive Date: 20110203
  Receipt Date: 20110125
  Transmission Date: 20110831
  Serious: Yes (Hospitalization, Other)
  Sender: FDA-Public Use
  Company Number: CA-JNJFOC-20110104518

PATIENT
  Sex: Female
  Weight: 47 kg

DRUGS (3)
  1. PALAFER [Concomitant]
  2. REMICADE [Suspect]
     Indication: CROHN'S DISEASE
     Route: 042
  3. MULTI-VITAMINS [Concomitant]

REACTIONS (2)
  - INTRACRANIAL ANEURYSM [None]
  - CEREBROVASCULAR ACCIDENT [None]
